FAERS Safety Report 5889854-X (Version None)
Quarter: 2008Q3

REPORT INFORMATION
  Report Type: 
  Country: None (occurrence: None)
  Receive Date: 20080919
  Receipt Date: 20080911
  Transmission Date: 20090109
  Serious: Yes (Other)
  Sender: FDA-Public Use
  Company Number: US-BAXTER-2008BH008493

PATIENT
  Age: 17 Year
  Sex: Male
  Weight: 71 kg

DRUGS (61)
  1. ADVATE [Suspect]
     Indication: HAEMORRHAGE
     Dates: start: 20080806, end: 20080806
  2. ADVATE [Suspect]
     Indication: PROPHYLAXIS
     Dates: start: 20080806, end: 20080806
  3. ADVATE [Suspect]
     Dates: start: 20080806, end: 20080806
  4. ADVATE [Suspect]
     Dates: start: 20080806, end: 20080806
  5. ADVATE [Suspect]
     Dates: start: 20080806, end: 20080806
  6. ADVATE [Suspect]
     Dates: start: 20080806, end: 20080806
  7. ADVATE [Suspect]
     Dates: start: 20080806, end: 20080806
  8. ADVATE [Suspect]
     Dates: start: 20080806, end: 20080806
  9. ADVATE [Suspect]
     Dates: start: 20080807, end: 20080807
  10. ADVATE [Suspect]
     Dates: start: 20080807, end: 20080807
  11. ADVATE [Suspect]
     Dates: start: 20080807, end: 20080807
  12. ADVATE [Suspect]
     Dates: start: 20080807, end: 20080807
  13. ADVATE [Suspect]
     Dates: start: 20080807, end: 20080807
  14. ADVATE [Suspect]
     Dates: start: 20080807, end: 20080807
  15. ADVATE [Suspect]
     Dates: start: 20080807, end: 20080807
  16. ADVATE [Suspect]
     Dates: start: 20080807, end: 20080807
  17. ADVATE [Suspect]
     Dates: start: 20080807, end: 20080807
  18. ADVATE [Suspect]
     Dates: start: 20080807, end: 20080807
  19. ADVATE [Suspect]
     Dates: start: 20080807, end: 20080807
  20. ADVATE [Suspect]
     Dates: start: 20080807, end: 20080807
  21. ADVATE [Suspect]
     Dates: start: 20080807, end: 20080807
  22. ADVATE [Suspect]
     Dates: start: 20080807, end: 20080807
  23. ADVATE [Suspect]
     Dates: start: 20080807, end: 20080807
  24. ADVATE [Suspect]
     Dates: start: 20080807, end: 20080807
  25. ADVATE [Suspect]
     Dates: start: 20080808, end: 20080808
  26. ADVATE [Suspect]
     Dates: start: 20080808, end: 20080808
  27. ADVATE [Suspect]
     Dates: start: 20080808, end: 20080808
  28. ADVATE [Suspect]
     Dates: start: 20080808, end: 20080808
  29. ADVATE [Suspect]
     Dates: start: 20080808, end: 20080808
  30. ADVATE [Suspect]
     Dates: start: 20080808, end: 20080808
  31. ADVATE [Suspect]
     Dates: start: 20080808, end: 20080808
  32. ADVATE [Suspect]
     Dates: start: 20080808, end: 20080808
  33. ADVATE [Suspect]
     Dates: start: 20080808, end: 20080808
  34. ADVATE [Suspect]
     Dates: start: 20080808, end: 20080808
  35. ADVATE [Suspect]
     Dates: start: 20080808, end: 20080808
  36. ADVATE [Suspect]
     Dates: start: 20080808, end: 20080808
  37. ADVATE [Suspect]
     Dates: start: 20080814, end: 20080814
  38. ADVATE [Suspect]
     Dates: start: 20080814, end: 20080814
  39. ADVATE [Suspect]
     Dates: start: 20080814, end: 20080814
  40. ADVATE [Suspect]
     Dates: start: 20080814, end: 20080814
  41. ADVATE [Suspect]
     Dates: start: 20080807, end: 20080807
  42. ADVATE [Suspect]
     Dates: start: 20080807, end: 20080807
  43. ADVATE [Suspect]
     Dates: start: 20080807, end: 20080807
  44. ADVATE [Suspect]
     Dates: start: 20080807, end: 20080807
  45. ADVATE [Suspect]
     Dates: start: 20080807, end: 20080807
  46. ADVATE [Suspect]
     Dates: start: 20080807, end: 20080807
  47. ADVATE [Suspect]
     Dates: start: 20080808, end: 20080808
  48. ADVATE [Suspect]
     Dates: start: 20080808, end: 20080808
  49. ADVATE [Suspect]
     Dates: start: 20080808, end: 20080808
  50. ADVATE [Suspect]
     Dates: start: 20080808, end: 20080808
  51. ADVATE [Suspect]
     Dates: start: 20080808, end: 20080808
  52. ADVATE [Suspect]
     Dates: start: 20080808, end: 20080808
  53. ADVATE [Suspect]
     Dates: start: 20080808, end: 20080808
  54. ADVATE [Suspect]
     Dates: start: 20080808, end: 20080808
  55. ADVATE [Suspect]
     Dates: start: 20080814, end: 20080814
  56. ADVATE [Suspect]
     Dates: start: 20080814, end: 20080814
  57. ADVATE [Suspect]
     Dates: start: 20080814, end: 20080814
  58. ADVATE [Suspect]
     Dates: start: 20080814, end: 20080814
  59. ACETAMINOPHEN AND HYDROCODONE BITARTRATE [Concomitant]
     Indication: PAIN
     Route: 048
     Dates: start: 20080806, end: 20080807
  60. CEPHALEXIN [Concomitant]
     Indication: ANTIBIOTIC THERAPY
     Route: 048
     Dates: start: 20080808
  61. ACETAMINOPHEN AND OXYCODONE HCL [Concomitant]
     Indication: PAIN
     Route: 048
     Dates: start: 20080811

REACTIONS (2)
  - DRUG DISPENSING ERROR [None]
  - DRUG LEVEL BELOW THERAPEUTIC [None]
